FAERS Safety Report 26145199 (Version 1)
Quarter: 2025Q4

REPORT INFORMATION
  Report Type: Spontaneous
  Country: US (occurrence: None)
  Receive Date: 20251210
  Receipt Date: 20251210
  Transmission Date: 20260117
  Serious: Yes (Death)
  Sender: FDA-CTU
  Company Number: None

PATIENT
  Age: 28 Year
  Sex: Male
  Weight: 145 kg

DRUGS (2)
  1. LAMOTRIGINE [Suspect]
     Active Substance: LAMOTRIGINE
     Indication: Bipolar disorder
     Dates: start: 20250731, end: 20250820
  2. Guanfacine (INTUNIV) [Concomitant]
     Dates: start: 20250620, end: 20250902

REACTIONS (18)
  - Anaemia [None]
  - Thrombocytopenia [None]
  - Acute kidney injury [None]
  - Hypoxia [None]
  - Multiple organ dysfunction syndrome [None]
  - General physical health deterioration [None]
  - Jaundice [None]
  - Haemophagocytic lymphohistiocytosis [None]
  - Splenomegaly [None]
  - Platelet count decreased [None]
  - Serum ferritin increased [None]
  - Hypofibrinogenaemia [None]
  - Haemophagocytic lymphohistiocytosis [None]
  - Cholestasis [None]
  - Hepatic necrosis [None]
  - Traumatic lung injury [None]
  - Pulmonary embolism [None]
  - Pneumonitis [None]

NARRATIVE: CASE EVENT DATE: 20250902
